FAERS Safety Report 23895718 (Version 1)
Quarter: 2024Q2

REPORT INFORMATION
  Report Type: Spontaneous
  Country: GB (occurrence: GB)
  Receive Date: 20240524
  Receipt Date: 20240524
  Transmission Date: 20240716
  Serious: Yes (Other)
  Sender: FDA-Public Use
  Company Number: GB-TAKEDA-2024TUS038298

PATIENT
  Age: 37 Year
  Sex: Female

DRUGS (5)
  1. DOXORUBICIN [Suspect]
     Active Substance: DOXORUBICIN
     Indication: Hodgkin^s disease recurrent
     Dosage: 25 MILLIGRAM/SQ. METER
     Route: 050
  2. ADCETRIS [Suspect]
     Active Substance: BRENTUXIMAB VEDOTIN
     Indication: Hodgkin^s disease recurrent
     Dosage: UNK; ;
     Route: 050
  3. BLEOMYCIN [Suspect]
     Active Substance: BLEOMYCIN SULFATE
     Indication: Hodgkin^s disease recurrent
     Dosage: UNK; ;
     Route: 050
  4. DACARBAZINE [Suspect]
     Active Substance: DACARBAZINE
     Indication: Hodgkin^s disease recurrent
     Dosage: 375 MILLIGRAM/SQ. METER
     Route: 050
  5. VINBLASTINE [Suspect]
     Active Substance: VINBLASTINE
     Indication: Hodgkin^s disease recurrent
     Dosage: 6 MILLIGRAM/SQ. METER
     Route: 050

REACTIONS (9)
  - C-reactive protein abnormal [Unknown]
  - Lymphadenopathy [Unknown]
  - Night sweats [Unknown]
  - Neuropathy peripheral [Unknown]
  - White blood cell count decreased [Unknown]
  - Haemoglobin decreased [Unknown]
  - Anaemia [Unknown]
  - Pyrexia [Unknown]
  - Pregnancy [Unknown]
